FAERS Safety Report 17265677 (Version 1)
Quarter: 2020Q1

REPORT INFORMATION
  Report Type: Report from Study
  Country: None (occurrence: CA)
  Receive Date: 20200114
  Receipt Date: 20200114
  Transmission Date: 20200409
  Serious: Yes (Other)
  Sender: FDA-Public Use
  Company Number: CA-ABBVIE-20K-028-3230720-00

PATIENT
  Sex: Male

DRUGS (2)
  1. IMBRUVICA [Suspect]
     Active Substance: IBRUTINIB
     Indication: CHRONIC GRAFT VERSUS HOST DISEASE
     Dosage: STRENGTH = 140 MG
     Route: 048
     Dates: start: 20180907, end: 20190903
  2. IMBRUVICA [Suspect]
     Active Substance: IBRUTINIB
     Route: 048

REACTIONS (1)
  - Pneumothorax [Unknown]
